FAERS Safety Report 10852423 (Version 1)
Quarter: 2015Q1

REPORT INFORMATION
  Report Type: Spontaneous
  Country: US (occurrence: US)
  Receive Date: 20150222
  Receipt Date: 20150222
  Transmission Date: 20150721
  Serious: No
  Sender: FDA-Public Use
  Company Number: US-ALLERGAN-1426066US

PATIENT
  Age: 41 Year
  Sex: Female

DRUGS (4)
  1. BOTOX [Suspect]
     Active Substance: ONABOTULINUMTOXINA
     Indication: MIGRAINE
     Dosage: UNK UNK, SINGLE
     Route: 030
     Dates: start: 20141015, end: 20141015
  2. FROVA [Concomitant]
     Active Substance: FROVATRIPTAN SUCCINATE
     Dosage: UNK
  3. LORZONE [Concomitant]
     Active Substance: CHLORZOXAZONE
     Dosage: UNK
  4. PROPRANOLOL [Concomitant]
     Active Substance: PROPRANOLOL\PROPRANOLOL HYDROCHLORIDE
     Indication: MIGRAINE
     Dosage: UNK

REACTIONS (11)
  - Muscle spasms [Unknown]
  - Musculoskeletal disorder [Unknown]
  - Mastication disorder [Unknown]
  - Muscle tightness [Unknown]
  - Pain [Recovering/Resolving]
  - Muscular weakness [Recovered/Resolved]
  - Muscular weakness [Recovering/Resolving]
  - Tension headache [Unknown]
  - Musculoskeletal stiffness [Recovering/Resolving]
  - Muscular weakness [Unknown]
  - Muscular weakness [Unknown]

NARRATIVE: CASE EVENT DATE: 201410
